FAERS Safety Report 9256951 (Version 3)
Quarter: 2013Q3

REPORT INFORMATION
  Report Type: Spontaneous
  Country: US (occurrence: None)
  Receive Date: 20130423
  Receipt Date: 20130725
  Transmission Date: 20140515
  Serious: Yes (Hospitalization, Other)
  Sender: FDA-Public Use
  Company Number: JPI-P-031286

PATIENT
  Age: 10 Year
  Sex: Male

DRUGS (2)
  1. XYREM (500 MILLIGRAM/MILLILITERS, SOLUTION) (SODIUM OXYBATE) [Suspect]
     Indication: CATAPLEXY
     Dosage: 2.25 GM (1.125 GM, 2 IN 1 D), ORAL
     Dates: start: 20111013
  2. MODAFINIL [Concomitant]

REACTIONS (6)
  - Hypopnoea [None]
  - Respiratory arrest [None]
  - Extra dose administered [None]
  - Adverse event [None]
  - Treatment noncompliance [None]
  - Economic problem [None]
